FAERS Safety Report 16381940 (Version 2)
Quarter: 2022Q1

REPORT INFORMATION
  Report Type: Report from Study
  Country: IL (occurrence: IL)
  Receive Date: 20190603
  Receipt Date: 20220207
  Transmission Date: 20220423
  Serious: Yes (Other)
  Sender: FDA-Public Use
  Company Number: PHHY2018IL055789

PATIENT
  Age: 24 Year
  Sex: Male
  Weight: 82.8 kg

DRUGS (1)
  1. COSENTYX [Suspect]
     Active Substance: SECUKINUMAB
     Indication: Psoriatic arthropathy
     Dosage: 300 MG, QMO
     Route: 058
     Dates: start: 20180128

REACTIONS (14)
  - Clostridium difficile infection [Recovering/Resolving]
  - Pneumonia [Recovered/Resolved]
  - Productive cough [Recovering/Resolving]
  - Oropharyngeal pain [Not Recovered/Not Resolved]
  - Psoriasis [Recovered/Resolved]
  - Skin lesion [Not Recovered/Not Resolved]
  - Dry skin [Not Recovered/Not Resolved]
  - Pruritus [Not Recovered/Not Resolved]
  - Pulpitis dental [Not Recovered/Not Resolved]
  - Noninfective gingivitis [Not Recovered/Not Resolved]
  - Gingival pain [Not Recovered/Not Resolved]
  - Respiratory tract inflammation [Recovered/Resolved]
  - Helicobacter infection [Recovering/Resolving]
  - Nasopharyngitis [Not Recovered/Not Resolved]

NARRATIVE: CASE EVENT DATE: 20181207
